FAERS Safety Report 5485962-6 (Version None)
Quarter: 2007Q4

REPORT INFORMATION
  Report Type: 
  Country: None (occurrence: None)
  Receive Date: 20071012
  Receipt Date: 20071005
  Transmission Date: 20080405
  Serious: Yes (Hospitalization)
  Sender: FDA-Public Use
  Company Number: 056-C5013-07091459

PATIENT
  Age: 57 Year
  Sex: Female

DRUGS (5)
  1. CC-5013 (LENALIDOMIDE) (CAPSULES) [Suspect]
     Indication: MULTIPLE MYELOMA
     Dosage: 25 MG, 21 DAYS PER MONTH, ORAL; 25 MG, DAILY, ORAL
     Route: 048
     Dates: end: 20070715
  2. CC-5013 (LENALIDOMIDE) (CAPSULES) [Suspect]
     Indication: MULTIPLE MYELOMA
     Dosage: 25 MG, 21 DAYS PER MONTH, ORAL; 25 MG, DAILY, ORAL
     Route: 048
     Dates: start: 20070830, end: 20070918
  3. ALKERAN [Suspect]
     Indication: DRUG USE FOR UNKNOWN INDICATION
  4. DEXAMETHASONE TAB [Concomitant]
  5. PAMIDRONATE DISODIUM [Concomitant]

REACTIONS (1)
  - BONE MARROW FAILURE [None]
